FAERS Safety Report 9840290 (Version 1)
Quarter: 2014Q1

REPORT INFORMATION
  Report Type: Spontaneous
  Country: DK (occurrence: DK)
  Receive Date: 20140124
  Receipt Date: 20140124
  Transmission Date: 20141002
  Serious: Yes (Life-Threatening, Hospitalization, Other)
  Sender: FDA-Public Use
  Company Number: DK-ELI_LILLY_AND_COMPANY-DK201401007883

PATIENT
  Age: 76 Year
  Sex: Male

DRUGS (10)
  1. EFIENT [Suspect]
     Indication: THROMBOSIS PROPHYLAXIS
     Dosage: 5 MG, QD
     Route: 048
     Dates: start: 20130215, end: 20131030
  2. ATORVASTATIN [Suspect]
     Indication: THROMBOSIS PROPHYLAXIS
     Dosage: 80 MG, QD
     Route: 048
     Dates: start: 20130215, end: 20131021
  3. IBUPROFEN [Suspect]
     Dosage: UNK
     Dates: end: 20131021
  4. THEO-DUR [Concomitant]
     Indication: ASTHMA
  5. THEOPHYLLIN [Concomitant]
     Indication: ASTHMA
  6. BAMBUTEROL HYDROCHLORIDE [Concomitant]
     Indication: HYPERTENSION
  7. CETIRIZIN [Concomitant]
     Indication: HYPERTENSION
     Dosage: 10 MG, UNK
  8. AMLODIPIN MESILATE [Concomitant]
  9. METOPROLOL SUCCINATE [Concomitant]
     Indication: PAIN
  10. PARACETAMOL [Concomitant]

REACTIONS (3)
  - Drug-induced liver injury [Unknown]
  - Renal failure [Unknown]
  - Hepatorenal syndrome [Unknown]
